FAERS Safety Report 4850524-8 (Version None)
Quarter: 2005Q4

REPORT INFORMATION
  Report Type: 
  Country: None (occurrence: None)
  Receive Date: 20051212
  Receipt Date: 20051207
  Transmission Date: 20060501
  Serious: Yes (Disabling)
  Sender: FDA-Public Use
  Company Number: FR-RB-2436-2005

PATIENT
  Age: 43 Year
  Sex: Male

DRUGS (4)
  1. BUPRENORPHINE HCL [Suspect]
     Route: 042
     Dates: start: 19980101, end: 20051015
  2. DOSULEPIN HYDROCHLORIDE [Concomitant]
     Route: 048
     Dates: start: 20000615
  3. LOXAPINE SUCCINATE [Concomitant]
     Indication: DELUSION
     Route: 048
     Dates: start: 20000615
  4. TROPATEPINE HYDROCHLORIDE [Concomitant]
     Indication: PARKINSON'S DISEASE
     Route: 048
     Dates: start: 20050615

REACTIONS (2)
  - INTENTIONAL DRUG MISUSE [None]
  - RETINITIS [None]
